FAERS Safety Report 9936255 (Version 2)
Quarter: 2015Q1

REPORT INFORMATION
  Report Type: Report from Study
  Country: US (occurrence: US)
  Receive Date: 20140228
  Receipt Date: 20150216
  Transmission Date: 20150721
  Serious: Yes (Other)
  Sender: FDA-Public Use
  Company Number: US-AMGEN-USASP2014000629

PATIENT
  Age: 63 Year
  Sex: Female

DRUGS (5)
  1. PREDNISONE. [Suspect]
     Active Substance: PREDNISONE
     Indication: DYSPNOEA
  2. PREDNISONE. [Suspect]
     Active Substance: PREDNISONE
     Indication: HEAD DISCOMFORT
  3. PREDNISONE. [Suspect]
     Active Substance: PREDNISONE
     Indication: SINUSITIS
     Dosage: UNK
     Route: 065
  4. ENBREL [Suspect]
     Active Substance: ETANERCEPT
     Indication: RHEUMATOID ARTHRITIS
     Dosage: 50 MG, EVERY OTHER WEEK
     Route: 065
     Dates: start: 20131205, end: 201408
  5. ENBREL [Suspect]
     Active Substance: ETANERCEPT
     Dosage: UNK
     Route: 065

REACTIONS (14)
  - Arthralgia [Not Recovered/Not Resolved]
  - Pain in extremity [Not Recovered/Not Resolved]
  - Insomnia [Recovered/Resolved]
  - Head discomfort [Recovered/Resolved]
  - Asthenia [Recovered/Resolved]
  - Sinusitis [Recovered/Resolved]
  - Rhinorrhoea [Not Recovered/Not Resolved]
  - Injection site bruising [Not Recovered/Not Resolved]
  - Chills [Recovered/Resolved]
  - Pyrexia [Recovered/Resolved]
  - Dyspnoea [Recovered/Resolved]
  - Stress at work [Recovered/Resolved]
  - Abdominal infection [Recovered/Resolved]
  - Malaise [Recovered/Resolved]

NARRATIVE: CASE EVENT DATE: 20131205
